FAERS Safety Report 17758483 (Version 2)
Quarter: 2020Q2

REPORT INFORMATION
  Report Type: Spontaneous
  Country: US (occurrence: US)
  Receive Date: 20200507
  Receipt Date: 20200508
  Transmission Date: 20200714
  Serious: No
  Sender: FDA-Public Use
  Company Number: US-009507513-2005USA000441

PATIENT
  Age: 41 Year
  Sex: Female

DRUGS (11)
  1. GANIRELIX ACETATE INJECTION [Suspect]
     Active Substance: GANIRELIX ACETATE
     Indication: INFERTILITY FEMALE
     Dosage: 200 MILLIGRAM, QD
     Route: 058
     Dates: start: 20190415
  2. CLOMIPHENE CITRATE. [Concomitant]
     Active Substance: CLOMIPHENE CITRATE
  3. NOVAREL [Concomitant]
     Active Substance: CHORIOGONADOTROPIN ALFA
  4. AZITHROMYCIN ANHYDROUS. [Concomitant]
     Active Substance: AZITHROMYCIN ANHYDROUS
  5. DICLOFEN (DICLOFENAC) [Concomitant]
  6. FOLIC ACID. [Concomitant]
     Active Substance: FOLIC ACID
  7. DARAPRIM [Concomitant]
     Active Substance: PYRIMETHAMINE
  8. FOLLISTIM AQ [Suspect]
     Active Substance: FOLLITROPIN
  9. IRON (UNSPECIFIED) (+) MINERALS (UNSPECIFIED) (+) VITAMINS (UNSPECIFIE [Concomitant]
     Active Substance: IRON\MINERALS\VITAMINS
  10. FOLLISTIM AQ [Suspect]
     Active Substance: FOLLITROPIN
     Indication: INFERTILITY FEMALE
     Dosage: 450 UNITS, DAILY AS DIRECTED
     Route: 058
     Dates: start: 20190415
  11. MENOPUR [Concomitant]
     Active Substance: FOLLITROPIN\LUTEINIZING HORMONE

REACTIONS (1)
  - Irritability [Unknown]

NARRATIVE: CASE EVENT DATE: 202002
